FAERS Safety Report 5624171-4 (Version None)
Quarter: 2008Q1

REPORT INFORMATION
  Report Type: 
  Country: None (occurrence: None)
  Receive Date: 20080213
  Receipt Date: 20080204
  Transmission Date: 20080703
  Serious: Yes (Other)
  Sender: FDA-Public Use
  Company Number: PHBS2008ES01787

PATIENT
  Age: 56 Year
  Sex: Male

DRUGS (1)
  1. ZOLEDRONIC ACID [Suspect]
     Indication: MULTIPLE MYELOMA
     Dosage: 4 MG
     Route: 042

REACTIONS (18)
  - BIOPSY BONE ABNORMAL [None]
  - BONE DISORDER [None]
  - COMPUTERISED TOMOGRAM ABNORMAL [None]
  - DEBRIDEMENT [None]
  - ERYTHEMA [None]
  - FACE AND MOUTH X-RAY ABNORMAL [None]
  - FISTULA [None]
  - IMPAIRED HEALING [None]
  - KLEBSIELLA INFECTION [None]
  - ORAL PAIN [None]
  - OSTEOMYELITIS [None]
  - OSTEONECROSIS [None]
  - PURULENCE [None]
  - STAPHYLOCOCCAL INFECTION [None]
  - STREPTOCOCCAL INFECTION [None]
  - SWELLING [None]
  - TOOTH EXTRACTION [None]
  - WOUND INFECTION [None]
